FAERS Safety Report 22288050 (Version 1)
Quarter: 2023Q2

REPORT INFORMATION
  Report Type: Spontaneous
  Country: US (occurrence: US)
  Receive Date: 20230505
  Receipt Date: 20230505
  Transmission Date: 20230722
  Serious: No
  Sender: FDA-Public Use
  Company Number: US-INCYTE CORPORATION-2023IN004255

PATIENT

DRUGS (1)
  1. JAKAFI [Suspect]
     Active Substance: RUXOLITINIB
     Indication: Polycythaemia vera
     Dosage: 5 MILLIGRAM, BID
     Route: 048
     Dates: start: 20190910

REACTIONS (8)
  - Memory impairment [Unknown]
  - Distractibility [Unknown]
  - Chest discomfort [Unknown]
  - Emotional disorder [Unknown]
  - Decreased interest [Unknown]
  - Sunburn [Unknown]
  - Mental disorder [Unknown]
  - Product dose omission issue [Unknown]
